FAERS Safety Report 7107711-8 (Version None)
Quarter: 2010Q4

REPORT INFORMATION
  Report Type: 
  Country: None (occurrence: None)
  Receive Date: 20101117
  Receipt Date: 20101111
  Transmission Date: 20110411
  Serious: Yes (Death)
  Sender: FDA-Public Use
  Company Number: DE-BRISTOL-MYERS SQUIBB COMPANY-15324890

PATIENT
  Age: 57 Year
  Sex: Male
  Weight: 63 kg

DRUGS (4)
  1. CETUXIMAB [Suspect]
     Indication: HEAD AND NECK CANCER
     Dosage: CETUXIMAB 5MG/ML
     Route: 042
     Dates: start: 20100707, end: 20100930
  2. CISPLATIN [Suspect]
     Indication: HEAD AND NECK CANCER
     Route: 042
     Dates: start: 20100707, end: 20100923
  3. CILENGITIDE [Suspect]
     Indication: HEAD AND NECK CANCER
     Route: 042
     Dates: start: 20100707, end: 20100930
  4. FLUOROURACIL [Suspect]
     Indication: HEAD AND NECK CANCER
     Dosage: CONTINUOUS INFUSION FROM DAY 1 TO 4 OF CYCLE.
     Route: 042
     Dates: start: 20100707, end: 20100923

REACTIONS (13)
  - ARTERIOSCLEROSIS [None]
  - ARTERIOSCLEROSIS CORONARY ARTERY [None]
  - BONE MARROW FAILURE [None]
  - BRAIN OEDEMA [None]
  - CACHEXIA [None]
  - CHRONIC OBSTRUCTIVE PULMONARY DISEASE [None]
  - CORONARY ARTERY STENOSIS [None]
  - DEATH [None]
  - EMPHYSEMA [None]
  - HYDROCEPHALUS [None]
  - METASTASES TO LUNG [None]
  - NEPHROSCLEROSIS [None]
  - NEUTROPENIA [None]
